FAERS Safety Report 9999563 (Version 1)
Quarter: 2014Q1

REPORT INFORMATION
  Report Type: Report from Study
  Country: US (occurrence: US)
  Receive Date: 20140312
  Receipt Date: 20140312
  Transmission Date: 20141002
  Serious: Yes (Other)
  Sender: FDA-Public Use
  Company Number: US-SA-2014SA030051

PATIENT
  Age: 78 Year
  Sex: Female

DRUGS (1)
  1. CLOFARABINE [Suspect]
     Indication: MYELODYSPLASTIC SYNDROME
     Dosage: 28 DAY CYCLE
     Route: 048

REACTIONS (1)
  - Pancytopenia [Recovered/Resolved]
